FAERS Safety Report 9484450 (Version 1)
Quarter: 2013Q3

REPORT INFORMATION
  Report Type: Spontaneous
  Country: US (occurrence: US)
  Receive Date: 20130828
  Receipt Date: 20130828
  Transmission Date: 20140515
  Serious: Yes (Hospitalization)
  Sender: FDA-Public Use
  Company Number: US-AMGEN-KDL423981

PATIENT
  Age: 71 Year
  Sex: Male

DRUGS (1)
  1. ENBREL [Suspect]
     Indication: RHEUMATOID ARTHRITIS
     Dosage: 50 MG, QWK
     Route: 058
     Dates: start: 20040501

REACTIONS (5)
  - Vascular graft [Unknown]
  - Staphylococcal infection [Unknown]
  - Abdominal pain [Unknown]
  - Rheumatoid arthritis [Not Recovered/Not Resolved]
  - Rash papular [Not Recovered/Not Resolved]
